APPROVED DRUG PRODUCT: OXYBUTYNIN CHLORIDE
Active Ingredient: OXYBUTYNIN CHLORIDE
Strength: 15MG
Dosage Form/Route: TABLET, EXTENDED RELEASE;ORAL
Application: A076745 | Product #001
Applicant: IMPAX PHARMACEUTICALS
Approved: Nov 9, 2006 | RLD: No | RS: No | Type: DISCN